FAERS Safety Report 21377711 (Version 2)
Quarter: 2022Q4

REPORT INFORMATION
  Report Type: Report from Study
  Country: AR (occurrence: AR)
  Receive Date: 20220926
  Receipt Date: 20221103
  Transmission Date: 20230112
  Serious: Yes (Other)
  Sender: FDA-Public Use
  Company Number: AR-ABBVIE-22K-007-4511371-00

PATIENT
  Sex: Male

DRUGS (2)
  1. HUMIRA [Suspect]
     Active Substance: ADALIMUMAB
     Indication: Psoriatic arthropathy
     Dosage: FORM STRENGTH: 40 MILLIGRAM
     Route: 058
     Dates: start: 20210421
  2. FLOGOCOX [Concomitant]
     Indication: Product used for unknown indication
     Dates: start: 20220909

REACTIONS (5)
  - Arthropathy [Unknown]
  - Groin pain [Recovering/Resolving]
  - Bone infarction [Recovering/Resolving]
  - Muscle contracture [Unknown]
  - Cartilage injury [Recovering/Resolving]

NARRATIVE: CASE EVENT DATE: 20220101
